FAERS Safety Report 10829130 (Version 5)
Quarter: 2015Q3

REPORT INFORMATION
  Report Type: Spontaneous
  Country: GB (occurrence: GB)
  Receive Date: 20150219
  Receipt Date: 20150817
  Transmission Date: 20151125
  Serious: Yes (Other)
  Sender: FDA-Public Use
  Company Number: GB-ROCHE-1517684

PATIENT
  Sex: Female

DRUGS (4)
  1. HERCEPTIN [Suspect]
     Active Substance: TRASTUZUMAB
     Indication: PRODUCT USED FOR UNKNOWN INDICATION
     Route: 058
  2. NAPROXEN. [Concomitant]
     Active Substance: NAPROXEN
  3. HERCEPTIN [Suspect]
     Active Substance: TRASTUZUMAB
     Indication: PRODUCT USED FOR UNKNOWN INDICATION
     Route: 065
  4. OMEPRAZOLE. [Concomitant]
     Active Substance: OMEPRAZOLE

REACTIONS (16)
  - Local swelling [Unknown]
  - Breast pain [Unknown]
  - Heart rate irregular [Unknown]
  - Sputum discoloured [Unknown]
  - Breast swelling [Unknown]
  - Oedema peripheral [Unknown]
  - Headache [Unknown]
  - Arthritis [Unknown]
  - Cough [Unknown]
  - Pain in extremity [Unknown]
  - Arthralgia [Unknown]
  - Blister [Unknown]
  - Breast induration [Unknown]
  - Musculoskeletal pain [Unknown]
  - Thermal burn [Unknown]
  - Muscle tightness [Unknown]
